FAERS Safety Report 18458757 (Version 1)
Quarter: 2020Q4

REPORT INFORMATION
  Report Type: Spontaneous
  Country: US (occurrence: US)
  Receive Date: 20201103
  Receipt Date: 20201103
  Transmission Date: 20210114
  Serious: No
  Sender: FDA-Public Use
  Company Number: US-PFIZER INC-2019450671

PATIENT
  Age: 54 Year
  Sex: Female

DRUGS (2)
  1. PREGABALIN. [Suspect]
     Active Substance: PREGABALIN
     Dosage: 150 MG, DAILY (50MG / QTY 90 / DAY SUPPLY 30)
  2. PREGABALIN. [Suspect]
     Active Substance: PREGABALIN
     Dosage: 200 MG, DAILY (50 MG/ QTY 120/ DAY SUPPLY 30)

REACTIONS (1)
  - Drug ineffective [Unknown]
